FAERS Safety Report 8359854-9 (Version None)
Quarter: 2012Q2

REPORT INFORMATION
  Report Type: 
  Country: None (occurrence: None)
  Receive Date: 20120515
  Receipt Date: 20120511
  Transmission Date: 20120825
  Serious: Yes (Other)
  Sender: FDA-Public Use
  Company Number: GB-ASTELLAS-2012EU001389

PATIENT
  Sex: Male
  Weight: 76 kg

DRUGS (1)
  1. VESICARE [Suspect]
     Indication: POLLAKIURIA
     Dosage: 10 MG, UID/QD
     Route: 048
     Dates: start: 20120110, end: 20120223

REACTIONS (2)
  - ARRHYTHMIA [None]
  - BLOOD PRESSURE FLUCTUATION [None]
